FAERS Safety Report 19485472 (Version 1)
Quarter: 2021Q3

REPORT INFORMATION
  Report Type: Spontaneous
  Country: CN (occurrence: CN)
  Receive Date: 20210702
  Receipt Date: 20210702
  Transmission Date: 20211014
  Serious: Yes (Other)
  Sender: FDA-Public Use
  Company Number: CN-ROCHE-2859270

PATIENT
  Age: 54 Year
  Sex: Female

DRUGS (12)
  1. LENALIDOMIDE [Concomitant]
     Active Substance: LENALIDOMIDE
     Indication: CHRONIC LYMPHOCYTIC LEUKAEMIA
     Dates: start: 20200204, end: 20200210
  2. FLUDARABINE [Concomitant]
     Active Substance: FLUDARABINE PHOSPHATE
     Dates: start: 201709
  3. VENETOCLAX. [Concomitant]
     Active Substance: VENETOCLAX
     Indication: CHRONIC LYMPHOCYTIC LEUKAEMIA
     Route: 048
     Dates: start: 20200304
  4. FLUDARABINE [Concomitant]
     Active Substance: FLUDARABINE PHOSPHATE
     Indication: CHRONIC LYMPHOCYTIC LEUKAEMIA
     Dates: start: 201411, end: 201504
  5. MABTHERA [Suspect]
     Active Substance: RITUXIMAB
     Indication: CHRONIC LYMPHOCYTIC LEUKAEMIA
     Route: 065
     Dates: start: 201709
  6. SOLU?MEDROL [Concomitant]
     Active Substance: METHYLPREDNISOLONE SODIUM SUCCINATE
     Indication: CHRONIC LYMPHOCYTIC LEUKAEMIA
     Dates: start: 20200204, end: 20200210
  7. FLUDARABINE [Concomitant]
     Active Substance: FLUDARABINE PHOSPHATE
     Dates: start: 201803, end: 201804
  8. CYCLOPHOSPHAMIDE. [Concomitant]
     Active Substance: CYCLOPHOSPHAMIDE
     Indication: CHRONIC LYMPHOCYTIC LEUKAEMIA
     Dates: start: 201411, end: 201504
  9. VENETOCLAX. [Concomitant]
     Active Substance: VENETOCLAX
     Route: 048
  10. CYCLOPHOSPHAMIDE. [Concomitant]
     Active Substance: CYCLOPHOSPHAMIDE
     Dates: start: 201709
  11. CYCLOPHOSPHAMIDE. [Concomitant]
     Active Substance: CYCLOPHOSPHAMIDE
     Dates: start: 201803, end: 201804
  12. ORELABRUTINIB. [Concomitant]
     Active Substance: ORELABRUTINIB
     Indication: CHRONIC LYMPHOCYTIC LEUKAEMIA
     Route: 048
     Dates: start: 20180627

REACTIONS (13)
  - Mouth ulceration [Unknown]
  - Anaemia [Unknown]
  - Off label use [Unknown]
  - Paraneoplastic pemphigus [Unknown]
  - Rash [Unknown]
  - Infection [Unknown]
  - Conjunctivitis [Unknown]
  - Septic shock [Unknown]
  - Pneumonia [Unknown]
  - Myelosuppression [Unknown]
  - Conjunctival ulcer [Unknown]
  - Oesophageal ulcer [Unknown]
  - Hypersensitivity [Unknown]
